FAERS Safety Report 24051780 (Version 1)
Quarter: 2024Q3

REPORT INFORMATION
  Report Type: Spontaneous
  Country: US (occurrence: US)
  Receive Date: 20240704
  Receipt Date: 20240704
  Transmission Date: 20241017
  Serious: Yes (Hospitalization, Other)
  Sender: REGENERON
  Company Number: US-SA-2024SA187369

PATIENT
  Age: 60 Year
  Sex: Female

DRUGS (2)
  1. LIBTAYO [Suspect]
     Active Substance: CEMIPLIMAB-RWLC
     Indication: Squamous cell carcinoma of skin
     Dosage: UNK UNK, Q3W (SHE RECEIVED A TOTAL OF 9 CYCLES OF CEMIPLIMAB)
     Dates: start: 20210520, end: 20211117
  2. IBUPROFEN [Concomitant]
     Active Substance: IBUPROFEN
     Indication: Analgesic therapy
     Dosage: 2000 MG, Q6H
     Route: 065

REACTIONS (4)
  - Hypokalaemia [Recovered/Resolved]
  - Haemorrhage [Recovered/Resolved]
  - Wound infection [Recovered/Resolved]
  - Iron deficiency anaemia [Recovered/Resolved]

NARRATIVE: CASE EVENT DATE: 20210526
